FAERS Safety Report 12381932 (Version 3)
Quarter: 2016Q4

REPORT INFORMATION
  Report Type: Report from Study
  Country: US (occurrence: US)
  Receive Date: 20160518
  Receipt Date: 20161004
  Transmission Date: 20170207
  Serious: No
  Sender: FDA-Public Use
  Company Number: US-ALEXION-A201603537

PATIENT
  Sex: Female

DRUGS (8)
  1. SOLIRIS [Suspect]
     Active Substance: ECULIZUMAB
     Dosage: EVERY 8 WEEKS/ 56 DAYS
     Route: 042
  2. SOLIRIS [Suspect]
     Active Substance: ECULIZUMAB
     Dosage: UNK, 2 INFUSIONS EVERY 42 DAYS
     Route: 042
  3. SOLIRIS [Suspect]
     Active Substance: ECULIZUMAB
     Dosage: UNK, 2 INFUSION EVERY 28 DAYS
     Route: 042
  4. SOLIRIS [Suspect]
     Active Substance: ECULIZUMAB
     Dosage: 3 INFUSIONS AT 1 WEEK INTERVAL
     Route: 042
  5. SOLIRIS [Suspect]
     Active Substance: ECULIZUMAB
     Dosage: 2 INFUSIONS AT 2 WEEKS APART
     Route: 042
  6. SOLIRIS [Suspect]
     Active Substance: ECULIZUMAB
     Indication: HAEMOLYTIC URAEMIC SYNDROME
     Dosage: 1200 MG, UNK
     Route: 042
     Dates: start: 20151225
  7. SOLIRIS [Suspect]
     Active Substance: ECULIZUMAB
     Dosage: 2 INFUSIONS AT 4 WEEKS APART
     Route: 042
  8. SOLIRIS [Suspect]
     Active Substance: ECULIZUMAB
     Dosage: 2 INFUSIONS AT 6 WEEKS APART
     Route: 042

REACTIONS (3)
  - Rash [Not Recovered/Not Resolved]
  - Inappropriate schedule of drug administration [Not Recovered/Not Resolved]
  - Protein urine present [Not Recovered/Not Resolved]
